FAERS Safety Report 9321427 (Version 1)
Quarter: 2013Q2

REPORT INFORMATION
  Report Type: Spontaneous
  Country: GB (occurrence: None)
  Receive Date: 20130529
  Receipt Date: 20130529
  Transmission Date: 20140414
  Serious: Yes (Hospitalization, Other)
  Sender: FDA-Public Use
  Company Number: AUR-APL-2013-04355

PATIENT
  Age: 24 Year
  Sex: Female

DRUGS (2)
  1. OLANZAPINE (OLANZAPINE) [Suspect]
     Indication: BIPOLAR DISORDER
     Dosage: 10 MG (10 MG, 1 IN 1 D), UNKNOWN
  2. SODIUM VALPROATE (VALPROATE SODIUM) [Suspect]
     Indication: BIPOLAR DISORDER

REACTIONS (7)
  - Mania [None]
  - Treatment noncompliance [None]
  - Grandiosity [None]
  - Delusion [None]
  - Small size placenta [None]
  - Foetal growth restriction [None]
  - Caesarean section [None]
